FAERS Safety Report 9447545 (Version 1)
Quarter: 2013Q3

REPORT INFORMATION
  Report Type: Spontaneous
  Country: IN (occurrence: None)
  Receive Date: 20130805
  Receipt Date: 20130805
  Transmission Date: 20140515
  Serious: Yes (Congenital Anomaly, Other)
  Sender: FDA-Public Use
  Company Number: FK201302910

PATIENT
  Age: 14 Month
  Sex: Male

DRUGS (1)
  1. VALPROATE (MANUFACTURER UNKNOWN) (VALPROATE SODIUM) (VALPROATE SODIUM) [Suspect]
     Indication: EPILEPSY
     Route: 064

REACTIONS (3)
  - Foetal anticonvulsant syndrome [None]
  - Maternal drugs affecting foetus [None]
  - Hypospadias [None]
